FAERS Safety Report 5310649-X (Version None)
Quarter: 2007Q1

REPORT INFORMATION
  Report Type: 
  Country: None (occurrence: None)
  Receive Date: 20070201
  Receipt Date: 20061031
  Transmission Date: 20070707
  Serious: No
  Sender: FDA-Public Use
  Company Number: 258189

PATIENT
  Age: 3 Year
  Sex: Female
  Weight: 17.2 kg

DRUGS (3)
  1. LEVEMIR [Suspect]
     Indication: DIABETES MELLITUS INSULIN-DEPENDENT
     Dosage: 6 IU, QD, SUBCUTANEOUS
     Route: 058
     Dates: start: 20061020
  2. LEVEMIR [Suspect]
  3. NOVOLOG [Concomitant]

REACTIONS (5)
  - ABDOMINAL PAIN UPPER [None]
  - BLOOD GLUCOSE INCREASED [None]
  - INSOMNIA [None]
  - RASH [None]
  - THIRST [None]
